FAERS Safety Report 4704972-7 (Version None)
Quarter: 2005Q2

REPORT INFORMATION
  Report Type: 
  Country: None (occurrence: None)
  Receive Date: 20050624
  Receipt Date: 20050624
  Transmission Date: 20051028
  Serious: Yes (Death)
  Sender: FDA-Public Use
  Company Number: None

PATIENT
  Sex: Male
  Weight: 77 kg

DRUGS (11)
  1. RAPAMYCIN [Suspect]
     Indication: PANCREATIC CARCINOMA METASTATIC
     Dosage: 2 MG PO Q WEEK
     Dates: start: 20050608
  2. RAPAMYCIN [Suspect]
     Indication: PANCREATIC CARCINOMA METASTATIC
     Dosage: 2 MG PO Q WEEK
     Dates: start: 20050615
  3. KETOCONAZOLE [Suspect]
     Indication: PANCREATIC CARCINOMA METASTATIC
     Dosage: 200 MG PO BID X1 , QD X3
     Route: 048
     Dates: start: 20050614, end: 20050621
  4. LOVENOX [Concomitant]
  5. PANCREASE [Concomitant]
  6. NORVASC [Concomitant]
  7. ALTACE [Concomitant]
  8. HYDROCHLOROTHIAZIDE [Concomitant]
  9. MS CONTIN [Concomitant]
  10. COLACE [Concomitant]
  11. SENNOKOT [Concomitant]

REACTIONS (4)
  - DEHYDRATION [None]
  - DISEASE PROGRESSION [None]
  - NAUSEA [None]
  - VOMITING [None]
